FAERS Safety Report 5714853-8 (Version None)
Quarter: 2008Q2

REPORT INFORMATION
  Report Type: 
  Country: None (occurrence: None)
  Receive Date: 20080423
  Receipt Date: 20070726
  Transmission Date: 20081010
  Serious: No
  Sender: FDA-Public Use
  Company Number: US-BAYER-US-2007-024986

PATIENT
  Age: 39 Year
  Sex: Female
  Weight: 76 kg

DRUGS (6)
  1. LEUKINE [Suspect]
     Route: 058
     Dates: start: 20070530, end: 20070628
  2. CISPLATIN [Concomitant]
  3. LASIX [Concomitant]
  4. BENADRYL ^WARNER-LAMBERT^ /USA/ [Concomitant]
  5. POTASSIUM CHLORIDE [Concomitant]
  6. MANNITOL [Concomitant]

REACTIONS (1)
  - INJECTION SITE INFLAMMATION [None]
